FAERS Safety Report 17090043 (Version 1)
Quarter: 2019Q4

REPORT INFORMATION
  Report Type: Spontaneous
  Country: US (occurrence: US)
  Receive Date: 20191129
  Receipt Date: 20191129
  Transmission Date: 20200122
  Serious: No
  Sender: FDA-Public Use
  Company Number: NVSC2019US050271

PATIENT

DRUGS (1)
  1. FOCALIN XR [Suspect]
     Active Substance: DEXMETHYLPHENIDATE HYDROCHLORIDE
     Indication: PRODUCT USED FOR UNKNOWN INDICATION
     Dosage: UNK
     Route: 065
     Dates: start: 20191119

REACTIONS (6)
  - Somnolence [Unknown]
  - Feeling jittery [Unknown]
  - Decreased appetite [Unknown]
  - Palpitations [Unknown]
  - Headache [Unknown]
  - Euphoric mood [Unknown]

NARRATIVE: CASE EVENT DATE: 20191119
